FAERS Safety Report 24527799 (Version 1)
Quarter: 2024Q4

REPORT INFORMATION
  Report Type: Spontaneous
  Country: US (occurrence: US)
  Receive Date: 20241021
  Receipt Date: 20241021
  Transmission Date: 20250115
  Serious: Yes (Other)
  Sender: ABBVIE
  Company Number: US-ABBVIE-5970797

PATIENT

DRUGS (1)
  1. HUMIRA [Suspect]
     Active Substance: ADALIMUMAB
     Indication: Product used for unknown indication
     Dosage: STRENGTH : 40 MG/0.4ML / 29 GAUGE 1/2 INCH LENGTH FIXED NEEDLE
     Route: 058

REACTIONS (1)
  - Leukaemia [Unknown]
